FAERS Safety Report 8577152-5 (Version None)
Quarter: 2012Q3

REPORT INFORMATION
  Report Type: 
  Country: None (occurrence: None)
  Receive Date: 20120807
  Receipt Date: 20120730
  Transmission Date: 20120928
  Serious: Yes (Hospitalization)
  Sender: FDA-Public Use
  Company Number: US-JNJFOC-20120205063

PATIENT
  Sex: Female
  Weight: 66.6 kg

DRUGS (13)
  1. PREDNISONE TAB [Concomitant]
  2. ACETAMINOPHEN [Concomitant]
  3. REMICADE [Suspect]
     Indication: COLITIS ULCERATIVE
     Route: 042
  4. LOPERAMIDE [Concomitant]
  5. REMICADE [Suspect]
     Route: 042
     Dates: start: 20120118
  6. OMEPRAZOLE [Concomitant]
  7. MULTI-VITAMINS [Concomitant]
  8. FERROUS SULFATE TAB [Concomitant]
  9. MERCAPTOPURINE [Concomitant]
  10. ANTIBIOTICS [Concomitant]
  11. MESALAMINE [Concomitant]
  12. OXYCODONE HCL [Concomitant]
  13. CHOLECALCIFEROL [Concomitant]

REACTIONS (4)
  - SMALL INTESTINAL OBSTRUCTION [None]
  - ABDOMINAL ABSCESS [None]
  - COLITIS ULCERATIVE [None]
  - PANCREATITIS [None]
